FAERS Safety Report 5535459-X (Version None)
Quarter: 2007Q4

REPORT INFORMATION
  Report Type: 
  Country: None (occurrence: None)
  Receive Date: 20071206
  Receipt Date: 20071128
  Transmission Date: 20080405
  Serious: Yes (Death)
  Sender: FDA-Public Use
  Company Number: ES-AVENTIS-200611790GDDC

PATIENT
  Age: 59 Year
  Sex: Male
  Weight: 57 kg

DRUGS (12)
  1. TAXOTERE [Suspect]
     Route: 042
     Dates: start: 20051119, end: 20060206
  2. CDDP [Suspect]
     Route: 042
     Dates: start: 20060206, end: 20060206
  3. FLUOROURACIL [Suspect]
     Route: 042
     Dates: start: 20051119, end: 20060206
  4. RADIOTHERAPY [Suspect]
     Dates: start: 20060206, end: 20060223
  5. FLUCONAZOLE [Concomitant]
     Route: 048
     Dates: start: 20060217
  6. DISTRANEURINE                      /00027502/ [Concomitant]
     Indication: ANXIETY
     Route: 048
     Dates: start: 20051114
  7. ENALAPRIL [Concomitant]
     Route: 048
     Dates: start: 20051117
  8. METOCLOPRAMIDE HCL [Concomitant]
     Indication: NAUSEA
     Route: 048
     Dates: start: 20051125
  9. LEXATIN [Concomitant]
     Indication: ANXIETY
     Route: 048
     Dates: start: 20051215
  10. OMEPRAZOLE [Concomitant]
     Route: 048
     Dates: start: 20051215
  11. ALMAX [Concomitant]
     Route: 048
     Dates: start: 20051210
  12. SEGURIL                            /00032601/ [Concomitant]
     Route: 048
     Dates: start: 20051125

REACTIONS (1)
  - SUDDEN DEATH [None]
